FAERS Safety Report 14467119 (Version 1)
Quarter: 2018Q1

REPORT INFORMATION
  Report Type: Spontaneous
  Country: US (occurrence: US)
  Receive Date: 20180130
  Receipt Date: 20180130
  Transmission Date: 20180509
  Serious: No
  Sender: FDA-Public Use
  Company Number: None

PATIENT
  Age: 59 Year
  Sex: Female

DRUGS (1)
  1. EPCLUSA [Suspect]
     Active Substance: SOFOSBUVIR\VELPATASVIR

REACTIONS (5)
  - Pain in extremity [None]
  - Confusional state [None]
  - Chills [None]
  - Headache [None]
  - Pain [None]

NARRATIVE: CASE EVENT DATE: 20180129
